FAERS Safety Report 6010248-0 (Version None)
Quarter: 2008Q4

REPORT INFORMATION
  Report Type: 
  Country: None (occurrence: None)
  Receive Date: 20081218
  Receipt Date: 20080221
  Transmission Date: 20090506
  Serious: No
  Sender: FDA-Public Use
  Company Number: A0711028A

PATIENT
  Sex: Male

DRUGS (3)
  1. FLONASE [Suspect]
     Route: 045
     Dates: start: 20050101, end: 20060101
  2. VERAMYST [Suspect]
     Route: 045
     Dates: start: 20080204, end: 20080218
  3. NO CONCURRENT MEDICATION [Concomitant]

REACTIONS (1)
  - DRUG INEFFECTIVE [None]
